FAERS Safety Report 13477668 (Version 1)
Quarter: 2017Q2

REPORT INFORMATION
  Report Type: Spontaneous
  Country: US (occurrence: US)
  Receive Date: 20170425
  Receipt Date: 20170425
  Transmission Date: 20170830
  Serious: Yes (Other)
  Sender: FDA-Public Use
  Company Number: None

PATIENT
  Age: 33 Year
  Sex: Female
  Weight: 89.55 kg

DRUGS (4)
  1. LATUDA [Suspect]
     Active Substance: LURASIDONE HYDROCHLORIDE
     Indication: DEPRESSION
     Dosage: ?          QUANTITY:7 TABLET(S);?
     Route: 048
  2. ATIVAN [Concomitant]
     Active Substance: LORAZEPAM
  3. VITAMIN D [Concomitant]
     Active Substance: CHOLECALCIFEROL
  4. MULTI VITAMIN FOR WOMEN [Concomitant]

REACTIONS (10)
  - Skin reaction [None]
  - Dizziness [None]
  - Balance disorder [None]
  - Disturbance in attention [None]
  - Loss of consciousness [None]
  - Confusional state [None]
  - Pharyngeal oedema [None]
  - Somnolence [None]
  - Dysphagia [None]
  - Fatigue [None]

NARRATIVE: CASE EVENT DATE: 20170420
